FAERS Safety Report 9338854 (Version 2)
Quarter: 2013Q2

REPORT INFORMATION
  Report Type: Spontaneous
  Country: US (occurrence: US)
  Receive Date: 20130610
  Receipt Date: 20130628
  Transmission Date: 20140414
  Serious: No
  Sender: FDA-Public Use
  Company Number: US-PFIZER INC-2013171302

PATIENT
  Age: 16 Year
  Sex: Female
  Weight: 54.42 kg

DRUGS (1)
  1. ZITHROMAX [Suspect]
     Indication: SINUSITIS
     Dosage: UNK
     Route: 048
     Dates: start: 20130326, end: 20130331

REACTIONS (4)
  - Hypersensitivity [Not Recovered/Not Resolved]
  - Rash generalised [Recovered/Resolved]
  - Sleep disorder [Not Recovered/Not Resolved]
  - Eating disorder [Not Recovered/Not Resolved]
